FAERS Safety Report 25437544 (Version 1)
Quarter: 2025Q2

REPORT INFORMATION
  Report Type: Spontaneous
  Country: US (occurrence: US)
  Receive Date: 20250616
  Receipt Date: 20250616
  Transmission Date: 20250717
  Serious: No
  Sender: TEVA
  Company Number: US-TEVA-VS-3341625

PATIENT
  Age: 73 Year
  Sex: Female

DRUGS (1)
  1. AJOVY [Suspect]
     Active Substance: FREMANEZUMAB-VFRM
     Indication: Migraine
     Dosage: STRENGTH: 225/1.5MG/ML
     Route: 058

REACTIONS (3)
  - Illness [Unknown]
  - Hypersensitivity [Unknown]
  - Product use issue [Unknown]
